FAERS Safety Report 14641350 (Version 1)
Quarter: 2018Q1

REPORT INFORMATION
  Report Type: Spontaneous
  Country: ES (occurrence: ES)
  Receive Date: 20180315
  Receipt Date: 20180315
  Transmission Date: 20180509
  Serious: Yes (Other)
  Sender: FDA-Public Use
  Company Number: PHHY2018ES038467

PATIENT

DRUGS (1)
  1. REVOLADE [Suspect]
     Active Substance: ELTROMBOPAG
     Indication: TRANSPLANT
     Route: 065

REACTIONS (3)
  - Sensory loss [Unknown]
  - Product use in unapproved indication [Unknown]
  - Gait disturbance [Unknown]
